FAERS Safety Report 17552979 (Version 1)
Quarter: 2020Q1

REPORT INFORMATION
  Report Type: Report from Study
  Country: US (occurrence: US)
  Receive Date: 20200317
  Receipt Date: 20200317
  Transmission Date: 20200409
  Serious: Yes (Hospitalization)
  Sender: FDA-Public Use
  Company Number: US-GILEAD-2020-0455297

PATIENT
  Age: 14 Year
  Sex: Female

DRUGS (10)
  1. VANCOMYCIN [Concomitant]
     Active Substance: VANCOMYCIN
  2. PULMOZYME [Concomitant]
     Active Substance: DORNASE ALFA
  3. ZENPEP [Concomitant]
     Active Substance: PANCRELIPASE AMYLASE\PANCRELIPASE LIPASE\PANCRELIPASE PROTEASE
  4. PROAIR [FLUTICASONE PROPIONATE] [Concomitant]
     Active Substance: FLUTICASONE PROPIONATE
  5. VITAMIN D3 [Concomitant]
     Active Substance: CHOLECALCIFEROL
  6. SODIUM CHLORIDE. [Concomitant]
     Active Substance: SODIUM CHLORIDE
  7. AZTREONAM LYSINE [Suspect]
     Active Substance: AZTREONAM LYSINE
     Indication: CYSTIC FIBROSIS
     Dosage: INHALE 1 VIAL VIA NEB TID 28 DAYS 28 DAYS OFF
     Route: 055
     Dates: start: 20161130
  8. AZITHROMYCIN ANHYDROUS. [Concomitant]
     Active Substance: AZITHROMYCIN ANHYDROUS
  9. STERILE WATER [Concomitant]
     Active Substance: WATER
  10. TRIKAFTA [Concomitant]
     Active Substance: ELEXACAFTOR\IVACAFTOR\TEZACAFTOR

REACTIONS (1)
  - Influenza [Unknown]

NARRATIVE: CASE EVENT DATE: 202003
